FAERS Safety Report 9223619 (Version 5)
Quarter: 2013Q3

REPORT INFORMATION
  Report Type: Report from Study
  Country: DE (occurrence: DE)
  Receive Date: 20130410
  Receipt Date: 20130812
  Transmission Date: 20140515
  Serious: Yes (Hospitalization, Other)
  Sender: FDA-Public Use
  Company Number: DE-TEVA-397477USA

PATIENT
  Age: 84 Year
  Sex: Female

DRUGS (10)
  1. BENDAMUSTINE [Suspect]
     Indication: MALIGNANT LYMPHOID NEOPLASM
     Dosage: REGIMEN #1
     Dates: start: 20121218
  2. BENDAMUSTINE [Suspect]
     Dosage: REGIMEN #2
     Dates: start: 20130130
  3. RITUXIMAB [Suspect]
     Indication: MALIGNANT LYMPHOID NEOPLASM
     Dosage: REGIMEN #1
     Route: 042
     Dates: start: 20121217
  4. RITUXIMAB [Suspect]
     Dosage: REGIMEN #2
     Route: 042
     Dates: start: 20130128
  5. TOREM [Concomitant]
     Dates: start: 2002
  6. RAMIPRIL [Concomitant]
     Dates: start: 2002
  7. METOPROLOL [Concomitant]
     Dates: start: 2002
  8. EUTHYROX [Concomitant]
     Dates: start: 2000
  9. DETRUSITOL [Concomitant]
     Dates: start: 2002
  10. FRAXIPARIN [Concomitant]
     Dates: start: 20121005

REACTIONS (3)
  - General physical health deterioration [Recovered/Resolved]
  - Nausea [Recovered/Resolved]
  - Neutropenia [Recovered/Resolved]
